FAERS Safety Report 5975161-3 (Version None)
Quarter: 2008Q4

REPORT INFORMATION
  Report Type: 
  Country: None (occurrence: None)
  Receive Date: 20081202
  Receipt Date: 20080828
  Transmission Date: 20090506
  Serious: No
  Sender: FDA-Public Use
  Company Number: US-ABBOTT-08P-163-0472889-00

PATIENT
  Sex: Female
  Weight: 68.1 kg

DRUGS (2)
  1. LUPRON DEPOT [Suspect]
     Indication: ENDOMETRIOSIS
     Route: 030
     Dates: start: 20080822
  2. VENLAFAXINE HCL [Concomitant]
     Indication: DRUG USE FOR UNKNOWN INDICATION
     Route: 048
     Dates: start: 20080808

REACTIONS (6)
  - CHILLS [None]
  - HOT FLUSH [None]
  - MIGRAINE [None]
  - NAUSEA [None]
  - VOMITING [None]
  - WEIGHT DECREASED [None]
